FAERS Safety Report 8112064-2 (Version None)
Quarter: 2012Q1

REPORT INFORMATION
  Report Type: 
  Country: None (occurrence: None)
  Receive Date: 20120203
  Receipt Date: 20120131
  Transmission Date: 20120608
  Serious: Yes (Other)
  Sender: FDA-Public Use
  Company Number: US-PFIZER INC-2012008177

PATIENT
  Sex: Male
  Weight: 86 kg

DRUGS (2)
  1. IBUPROFEN [Concomitant]
     Indication: HEADACHE
     Dosage: UNK, AS NEEDED
  2. LEVOXYL [Suspect]
     Indication: THYROID HORMONE REPLACEMENT THERAPY
     Dosage: 175 MG, DAILY
     Route: 048
     Dates: start: 20110501, end: 20120110

REACTIONS (5)
  - DYSPNOEA [None]
  - RASH GENERALISED [None]
  - LIP SWELLING [None]
  - OEDEMA MOUTH [None]
  - HYPERSENSITIVITY [None]
